FAERS Safety Report 6222181-X (Version None)
Quarter: 2009Q2

REPORT INFORMATION
  Report Type: 
  Country: None (occurrence: None)
  Receive Date: 20090609
  Receipt Date: 20090601
  Transmission Date: 20091009
  Serious: Yes (Death, Hospitalization)
  Sender: FDA-Public Use
  Company Number: IPS_01631_2009

PATIENT
  Sex: Male

DRUGS (3)
  1. APOKYN [Suspect]
     Indication: PARKINSON'S DISEASE
     Dosage: 0.4 ML 1X SUBCUTANEOUS
     Route: 058
     Dates: start: 20090416, end: 20090416
  2. APOKYN [Suspect]
     Indication: PARKINSON'S DISEASE
     Dosage: 0.2 ML 1X SUBCUTANEOUS, LESS THAN 0.3 ML 2X SUBCUTANEOUS
     Route: 058
     Dates: start: 20090401, end: 20090401
  3. APOKYN [Suspect]
     Indication: PARKINSON'S DISEASE
     Dosage: 0.2 ML 1X SUBCUTANEOUS, LESS THAN 0.3 ML 2X SUBCUTANEOUS
     Route: 058
     Dates: start: 20090402, end: 20090402

REACTIONS (6)
  - ABNORMAL BEHAVIOUR [None]
  - AGGRESSION [None]
  - CONFUSIONAL STATE [None]
  - DEPRESSED LEVEL OF CONSCIOUSNESS [None]
  - HALLUCINATION [None]
  - UNRESPONSIVE TO STIMULI [None]
